FAERS Safety Report 8889915 (Version 1)
Quarter: 2012Q4

REPORT INFORMATION
  Report Type: 
  Country: CA (occurrence: CA)
  Receive Date: 20121107
  Receipt Date: 20121107
  Transmission Date: 20130627
  Serious: Yes (Death)
  Sender: FDA-Public Use
  Company Number: PHMT2006CA00825

PATIENT
  Sex: Female

DRUGS (5)
  1. SANDOSTATIN LAR [Suspect]
     Indication: METASTATIC CARCINOID TUMOUR
     Dosage: 20 mg, BIW
     Dates: start: 20050830, end: 20060306
  2. SANDOSTATIN [Suspect]
     Indication: METASTATIC CARCINOID TUMOUR
     Route: 058
     Dates: start: 20050830
  3. ATIVAN [Concomitant]
  4. LISINOPRIL [Concomitant]
  5. ZOLOFT [Concomitant]

REACTIONS (4)
  - Respiratory failure [Fatal]
  - Metastatic carcinoid tumour [Fatal]
  - Malignant neoplasm progression [Fatal]
  - Bradycardia [Unknown]
